FAERS Safety Report 17447740 (Version 1)
Quarter: 2020Q1

REPORT INFORMATION
  Report Type: Spontaneous
  Country: CA (occurrence: CA)
  Receive Date: 20200221
  Receipt Date: 20200221
  Transmission Date: 20200409
  Serious: Yes (Other)
  Sender: FDA-Public Use
  Company Number: CA-SAMSUNG BIOEPIS-SB-2020-05791

PATIENT
  Age: 45 Year
  Sex: Female

DRUGS (7)
  1. ACETAMINOPHEN. [Concomitant]
     Active Substance: ACETAMINOPHEN
     Indication: PREMEDICATION
     Route: 048
  2. FLAGYL [Concomitant]
     Active Substance: METRONIDAZOLE\METRONIDAZOLE HYDROCHLORIDE
     Indication: PRODUCT USED FOR UNKNOWN INDICATION
     Route: 048
  3. INFLIXIMAB [Suspect]
     Active Substance: INFLIXIMAB
     Indication: CROHN^S DISEASE
     Route: 042
  4. AZATHIOPRINE. [Concomitant]
     Active Substance: AZATHIOPRINE
     Indication: PRODUCT USED FOR UNKNOWN INDICATION
     Route: 048
  5. CIPRO [Concomitant]
     Active Substance: CIPROFLOXACIN HYDROCHLORIDE
     Indication: PRODUCT USED FOR UNKNOWN INDICATION
     Route: 048
  6. ETHINYLESTRADIOL;NORGESTIMATE [Concomitant]
     Indication: CONTRACEPTION
     Dosage: UNKNOWN
     Route: 048
  7. HYDROCORTISONE. [Concomitant]
     Active Substance: HYDROCORTISONE
     Indication: PREMEDICATION
     Route: 042

REACTIONS (25)
  - Chapped lips [Recovered/Resolved]
  - Faecal calprotectin decreased [Recovered/Resolved]
  - Nasal congestion [Recovered/Resolved]
  - Proctalgia [Recovered/Resolved]
  - Peripheral swelling [Recovered/Resolved]
  - Inappropriate schedule of product administration [Recovered/Resolved]
  - Haematochezia [Recovered/Resolved]
  - Pruritus [Recovered/Resolved]
  - Anal abscess [Recovered/Resolved]
  - Nasopharyngitis [Recovered/Resolved]
  - Drug level below therapeutic [Recovered/Resolved]
  - Erythema [Recovered/Resolved]
  - Oral pain [Recovered/Resolved]
  - Productive cough [Recovered/Resolved]
  - Blister infected [Recovered/Resolved]
  - Disease recurrence [Recovered/Resolved]
  - Pelvic pain [Recovered/Resolved]
  - Female genital tract fistula [Recovered/Resolved]
  - Pelvic abscess [Recovered/Resolved]
  - Fistula discharge [Recovered/Resolved]
  - Gingival pain [Recovered/Resolved]
  - Pain [Recovered/Resolved]
  - Pelvic inflammatory disease [Recovered/Resolved]
  - Drug level above therapeutic [Recovered/Resolved]
  - Off label use [Recovered/Resolved]
